FAERS Safety Report 14771976 (Version 1)
Quarter: 2018Q2

REPORT INFORMATION
  Report Type: Report from Study
  Country: None (occurrence: NL)
  Receive Date: 20180417
  Receipt Date: 20180417
  Transmission Date: 20180711
  Serious: Yes (Hospitalization)
  Sender: FDA-Public Use
  Company Number: NL-ABBVIE-18K-114-2261835-00

PATIENT
  Sex: Female

DRUGS (1)
  1. DUODOPA [Suspect]
     Active Substance: CARBIDOPA\LEVODOPA
     Indication: PARKINSON^S DISEASE
     Dosage: MD 20, CD 2.9, ED 3
     Route: 050
     Dates: start: 20150909

REACTIONS (7)
  - Abnormal faeces [Not Recovered/Not Resolved]
  - Stoma site erythema [Unknown]
  - Fibroma [Not Recovered/Not Resolved]
  - Hip fracture [Recovered/Resolved]
  - Cognitive disorder [Not Recovered/Not Resolved]
  - Stoma site discharge [Not Recovered/Not Resolved]
  - Abnormal dreams [Not Recovered/Not Resolved]
